FAERS Safety Report 15920531 (Version 3)
Quarter: 2019Q3

REPORT INFORMATION
  Report Type: Spontaneous
  Country: US (occurrence: US)
  Receive Date: 20190205
  Receipt Date: 20190807
  Transmission Date: 20191004
  Serious: No
  Sender: FDA-Public Use
  Company Number: US-PFIZER INC-2019048660

PATIENT
  Sex: Female
  Weight: 91 kg

DRUGS (5)
  1. VITAMIN D3 [Concomitant]
     Active Substance: CHOLECALCIFEROL
     Dosage: UNK
  2. VITAMIN K [MENADIONE] [Concomitant]
     Active Substance: MENADIONE
     Dosage: UNK
  3. NORVASC [Suspect]
     Active Substance: AMLODIPINE BESYLATE
     Indication: BLOOD PRESSURE ABNORMAL
     Dosage: 10 MG, DAILY
     Route: 048
  4. ZYRTEC [Concomitant]
     Active Substance: CETIRIZINE HYDROCHLORIDE
     Indication: HYPERSENSITIVITY
     Dosage: 0.5 DF, AS NEEDED
     Route: 048
  5. COENZYME [Concomitant]
     Active Substance: UBIDECARENONE
     Dosage: UNK

REACTIONS (5)
  - Lip swelling [Not Recovered/Not Resolved]
  - Dizziness [Unknown]
  - Joint swelling [Unknown]
  - Drug hypersensitivity [Not Recovered/Not Resolved]
  - Pruritus [Recovered/Resolved]
